FAERS Safety Report 9311121 (Version 1)
Quarter: 2013Q2

REPORT INFORMATION
  Report Type: Spontaneous
  Country: US (occurrence: US)
  Receive Date: 20130528
  Receipt Date: 20130528
  Transmission Date: 20140414
  Serious: No
  Sender: FDA-Public Use
  Company Number: US-PFIZER INC-2013161068

PATIENT
  Sex: Female
  Weight: 76.64 kg

DRUGS (4)
  1. SERTRALINE HCL [Suspect]
     Indication: DEPRESSION
     Dosage: 250 MG, DAILY
     Route: 048
  2. SERTRALINE HYDROCHLORIDE [Suspect]
     Indication: DEPRESSION
     Dosage: 250 MG, DAILY
     Route: 048
     Dates: start: 201211, end: 2012
  3. SERTRALINE HYDROCHLORIDE [Suspect]
     Dosage: 300 MG, DAILY
     Route: 048
     Dates: start: 201212
  4. ADDERALL XR [Concomitant]
     Indication: ATTENTION DEFICIT/HYPERACTIVITY DISORDER
     Dosage: 50 MG, DAILY

REACTIONS (1)
  - Drug ineffective [Unknown]
